FAERS Safety Report 8776905 (Version 2)
Quarter: 2012Q4

REPORT INFORMATION
  Report Type: 
  Country: CN (occurrence: CN)
  Receive Date: 20120911
  Receipt Date: 20120923
  Transmission Date: 20130627
  Serious: Yes (Other)
  Sender: FDA-Public Use
  Company Number: CN-ABBOTT-12P-035-0978099-00

PATIENT
  Age: 31 Year
  Sex: Female

DRUGS (2)
  1. DEPAKINE [Suspect]
     Indication: EPILEPSY
     Route: 048
     Dates: start: 201206, end: 20120814
  2. DEPAKINE [Suspect]
     Dosage: extended release
     Route: 048
     Dates: start: 20120815

REACTIONS (4)
  - Epilepsy [Unknown]
  - Convulsion [Unknown]
  - Skin discolouration [Unknown]
  - Alopecia [Unknown]
